FAERS Safety Report 23856853 (Version 1)
Quarter: 2024Q2

REPORT INFORMATION
  Report Type: Spontaneous
  Country: ES (occurrence: ES)
  Receive Date: 20240515
  Receipt Date: 20240515
  Transmission Date: 20240716
  Serious: Yes (Other)
  Sender: FDA-Public Use
  Company Number: ES-CHEPLA-2024005847

PATIENT
  Age: 45 Year
  Sex: Female

DRUGS (11)
  1. GANCICLOVIR [Suspect]
     Active Substance: GANCICLOVIR
     Indication: Cytomegalovirus chorioretinitis
     Dosage: 400 MCG / 0.1 ML ; 5 INJECTIONS TOTAL
     Route: 031
  2. VALGANCICLOVIR [Suspect]
     Active Substance: VALGANCICLOVIR
     Indication: Cytomegalovirus chorioretinitis
     Dosage: BID/EVERY 12 HR?DAILY DOSE: 1800 MILLIGRAM
     Route: 048
  3. PREDNISONE [Suspect]
     Active Substance: PREDNISONE
  4. PREDNISONE [Suspect]
     Active Substance: PREDNISONE
  5. MYCOPHENOLATE MOFETIL [Suspect]
     Active Substance: MYCOPHENOLATE MOFETIL
  6. ACYCLOVIR [Suspect]
     Active Substance: ACYCLOVIR
  7. COTRIMOXAZOLE [Suspect]
     Active Substance: SULFAMETHOXAZOLE\TRIMETHOPRIM
     Dosage: 160/800 MG
  8. VORICONAZOLE [Suspect]
     Active Substance: VORICONAZOLE
     Dosage: EVERY 24 HRS?DAILY DOSE: 400 MILLIGRAM
  9. TACROLIMUS [Suspect]
     Active Substance: TACROLIMUS
  10. TACROLIMUS [Suspect]
     Active Substance: TACROLIMUS
  11. TACROLIMUS [Suspect]
     Active Substance: TACROLIMUS

REACTIONS (3)
  - Immune recovery uveitis [Unknown]
  - Off label use [Recovered/Resolved]
  - Off label use [Recovered/Resolved]
